FAERS Safety Report 6188293-4 (Version None)
Quarter: 2009Q2

REPORT INFORMATION
  Report Type: 
  Country: None (occurrence: None)
  Receive Date: 20090513
  Receipt Date: 20090504
  Transmission Date: 20091009
  Serious: Yes (Other)
  Sender: FDA-Public Use
  Company Number: MY-PFIZER INC-2009209059

PATIENT

DRUGS (1)
  1. SUNITINIB MALATE [Suspect]
     Dosage: 37.5 MG, UNK
     Route: 048

REACTIONS (2)
  - GRAND MAL CONVULSION [None]
  - PALMAR-PLANTAR ERYTHRODYSAESTHESIA SYNDROME [None]
